FAERS Safety Report 14126418 (Version 2)
Quarter: 2018Q1

REPORT INFORMATION
  Report Type: Not Available
  Country: US (occurrence: US)
  Receive Date: 20171025
  Receipt Date: 20180115
  Transmission Date: 20180508
  Serious: No
  Sender: FDA-Public Use
  Company Number: US-NEUROCRINE BIOSCIENCES INC.-2017NBI00957

PATIENT
  Age: 54 Year
  Sex: Female
  Weight: 108.96 kg

DRUGS (2)
  1. INGREZZA [Suspect]
     Active Substance: VALBENAZINE
     Indication: TARDIVE DYSKINESIA
     Route: 048
     Dates: start: 2017, end: 2017
  2. INGREZZA [Suspect]
     Active Substance: VALBENAZINE
     Route: 048
     Dates: start: 2017, end: 20171025

REACTIONS (8)
  - Asthenia [Not Recovered/Not Resolved]
  - Rhinorrhoea [Recovered/Resolved]
  - Fatigue [Unknown]
  - Somnolence [Unknown]
  - Mastication disorder [Recovering/Resolving]
  - Gait disturbance [Unknown]
  - Feeding disorder [Recovering/Resolving]
  - Cough [Recovered/Resolved]

NARRATIVE: CASE EVENT DATE: 2017
